FAERS Safety Report 7088515-1 (Version None)
Quarter: 2010Q4

REPORT INFORMATION
  Report Type: 
  Country: None (occurrence: None)
  Receive Date: 20101028
  Receipt Date: 20101012
  Transmission Date: 20110411
  Serious: Yes (Death)
  Sender: FDA-Public Use
  Company Number: UTC-001548

PATIENT
  Age: 72 Year
  Sex: Female

DRUGS (20)
  1. TYVASO [Suspect]
     Dosage: INHALATION
     Route: 055
     Dates: start: 20100104
  2. LEVOTHYROXINE (LEVOTHYROXINE) (TABLETS) [Concomitant]
  3. FLORA SINUS (FLUCLOXACILLIN SODIUM) (TABLETS) [Concomitant]
  4. ULORIC (FEBUXOSTAT) (TABLETS) [Concomitant]
  5. RECLAST (ZOLEDRONIC ACID) (SOLUTION) [Concomitant]
  6. COENZYME (UBIDECARENONE) (CAPSULES) [Concomitant]
  7. CLARITIN [Concomitant]
  8. XOPENEX (LEVOSALBUTAMOL) (SOLUTION) [Concomitant]
  9. SPIRONOLACTONE [Concomitant]
  10. POTASSIUM CHLORIDE (POTASSIUM CHLORDIE) [Concomitant]
  11. VITAMIN B12 (CYANOCOBALAMIN) (TABLETS) [Concomitant]
  12. OMEGA-3 (CAPSULES) [Concomitant]
  13. MUCINEX [Concomitant]
  14. INDAPAMIDE (INDAPAMIDE) (TABLETS) [Concomitant]
  15. ADVAIR (SERETIDE /01420901/) (INHALANT) [Concomitant]
  16. XOPENEX (LEVOSALBUTAMOL) (INHALANT) [Concomitant]
  17. IRON (IRON) (TABLETS) [Concomitant]
  18. TUMS (CALCIUM CARBONATE) (CHEWABLE TABLET) [Concomitant]
  19. MULTIVITAMIN (TABLETS) [Concomitant]
  20. LASIX [Concomitant]

REACTIONS (1)
  - SUDDEN DEATH [None]
